FAERS Safety Report 12009919 (Version 1)
Quarter: 2016Q1

REPORT INFORMATION
  Report Type: Spontaneous
  Country: GB (occurrence: GB)
  Receive Date: 20160205
  Receipt Date: 20160205
  Transmission Date: 20160526
  Serious: Yes (Hospitalization)
  Sender: FDA-Public Use
  Company Number: PHFR2016GB001236

PATIENT
  Age: 88 Year
  Sex: Male

DRUGS (1)
  1. ZOMETA [Suspect]
     Active Substance: ZOLEDRONIC ACID
     Indication: PRODUCT USED FOR UNKNOWN INDICATION
     Route: 065

REACTIONS (5)
  - Urine abnormality [Unknown]
  - Nasopharyngitis [Unknown]
  - Fall [Unknown]
  - Humerus fracture [Unknown]
  - Pollakiuria [Unknown]

NARRATIVE: CASE EVENT DATE: 20151211
